FAERS Safety Report 10667147 (Version 1)
Quarter: 2014Q4

REPORT INFORMATION
  Report Type: Spontaneous
  Country: US (occurrence: None)
  Receive Date: 20141218
  Receipt Date: 20141218
  Transmission Date: 20150529
  Serious: No
  Sender: FDA-Public Use
  Company Number: 14AE049

PATIENT
  Age: 64 Year
  Sex: Male

DRUGS (1)
  1. EQUATE IBUPROFEN [Suspect]
     Active Substance: IBUPROFEN
     Indication: MUSCULOSKELETAL PAIN
     Dosage: 3 BY MOUTH/ PER NIGHT
     Route: 048
     Dates: start: 20141010, end: 20141204

REACTIONS (2)
  - Alcohol use [None]
  - Insomnia [None]

NARRATIVE: CASE EVENT DATE: 20141010
